FAERS Safety Report 7706914-9 (Version None)
Quarter: 2011Q3

REPORT INFORMATION
  Report Type: 
  Country: None (occurrence: None)
  Receive Date: 20110824
  Receipt Date: 20110817
  Transmission Date: 20111222
  Serious: Yes (Other)
  Sender: FDA-Public Use
  Company Number: US-GLAXOSMITHKLINE-A0941373A

PATIENT
  Sex: Female

DRUGS (15)
  1. PROAIR HFA [Concomitant]
  2. ADVAIR DISKUS 100/50 [Suspect]
     Indication: PRODUCT USED FOR UNKNOWN INDICATION
     Dosage: 1PUFF TWICE PER DAY
     Route: 055
  3. FUROSEMIDE [Concomitant]
  4. CARVEDILOL [Concomitant]
  5. SYNTHROID [Concomitant]
  6. LACTASE [Concomitant]
  7. AMBIEN [Concomitant]
  8. FOLIC ACID [Concomitant]
  9. ALBUTEROL [Concomitant]
  10. SPIRONOLACTONE [Concomitant]
  11. PREVACID [Concomitant]
  12. HYZAAR [Concomitant]
  13. VITAMIN D [Concomitant]
  14. AMITRIPTYLINE HCL [Concomitant]
  15. VICODIN [Concomitant]

REACTIONS (4)
  - GLOSSODYNIA [None]
  - ORAL DISCOMFORT [None]
  - DYSPHONIA [None]
  - CANDIDIASIS [None]
